FAERS Safety Report 5392998-2 (Version None)
Quarter: 2007Q3

REPORT INFORMATION
  Report Type: 
  Country: None (occurrence: None)
  Receive Date: 20070719
  Receipt Date: 20070714
  Transmission Date: 20080115
  Serious: Yes (Death)
  Sender: FDA-Public Use
  Company Number: 2007SP014225

PATIENT
  Sex: Female

DRUGS (1)
  1. INTERFERON ALFA-2B RECOMBINANT (S-P) [Suspect]
     Indication: HEPATITIS C

REACTIONS (2)
  - ORAL INTAKE REDUCED [None]
  - VOMITING [None]
